FAERS Safety Report 11720899 (Version 2)
Quarter: 2016Q2

REPORT INFORMATION
  Report Type: Spontaneous
  Country: US (occurrence: US)
  Receive Date: 20151110
  Receipt Date: 20160512
  Transmission Date: 20160815
  Serious: No
  Sender: FDA-Public Use
  Company Number: US-SA-2015SA134255

PATIENT
  Age: 72 Year
  Sex: Male
  Weight: 119.7 kg

DRUGS (19)
  1. LIVALO [Concomitant]
     Active Substance: PITAVASTATIN CALCIUM
  2. ZETIA [Concomitant]
     Active Substance: EZETIMIBE
  3. OMEGA-3 FATTY ACIDS [Concomitant]
     Active Substance: OMEGA-3 FATTY ACIDS
     Route: 048
  4. CELEXA [Concomitant]
     Active Substance: CITALOPRAM HYDROBROMIDE
  5. ASPIRIN ^BAYER^ [Concomitant]
     Active Substance: ASPIRIN
     Route: 048
  6. PRILOSEC [Concomitant]
     Active Substance: OMEPRAZOLE MAGNESIUM
     Route: 048
  7. SOMA [Concomitant]
     Active Substance: CARISOPRODOL
  8. ALIROCUMAB PREFILLED PEN [Concomitant]
     Active Substance: ALIROCUMAB
     Dates: start: 20150813, end: 20150813
  9. ADVAIR DISKUS [Concomitant]
     Active Substance: FLUTICASONE PROPIONATE\SALMETEROL XINAFOATE
  10. VITAMIN E [Concomitant]
     Active Substance: .ALPHA.-TOCOPHEROL
  11. UBIDECARENONE [Concomitant]
     Active Substance: UBIDECARENONE
     Route: 048
  12. TOPROL XL [Concomitant]
     Active Substance: METOPROLOL SUCCINATE
  13. LYRICA [Concomitant]
     Active Substance: PREGABALIN
  14. PRALUENT [Suspect]
     Active Substance: ALIROCUMAB
     Indication: ARTERIOSCLEROSIS
     Dosage: DOSE: ONE INJECTION
     Route: 065
     Dates: start: 20150813, end: 20150813
  15. LASIX [Concomitant]
     Active Substance: FUROSEMIDE
  16. PRINIVIL [Concomitant]
     Active Substance: LISINOPRIL
  17. NITROSTAT [Concomitant]
     Active Substance: NITROGLYCERIN
     Route: 060
  18. CELEBREX [Concomitant]
     Active Substance: CELECOXIB
  19. VITAMIN D3 [Concomitant]
     Active Substance: CHOLECALCIFEROL
     Route: 048

REACTIONS (4)
  - Fatigue [Recovered/Resolved]
  - Myalgia [Recovered/Resolved]
  - Nasal congestion [Recovered/Resolved]
  - Influenza like illness [Recovered/Resolved]

NARRATIVE: CASE EVENT DATE: 20150824
